FAERS Safety Report 7656230-9 (Version None)
Quarter: 2011Q3

REPORT INFORMATION
  Report Type: 
  Country: None (occurrence: None)
  Receive Date: 20110801
  Receipt Date: 20110726
  Transmission Date: 20111222
  Serious: Yes (Life-Threatening)
  Sender: FDA-Public Use
  Company Number: CH-ACCORD-009939

PATIENT
  Age: 25 Year
  Sex: Female

DRUGS (3)
  1. TOPIRAMATE [Suspect]
     Indication: STATUS EPILEPTICUS
     Dosage: ORAL
     Route: 048
  2. CLONAZEPAM [Concomitant]
  3. PHENYTOIN [Concomitant]

REACTIONS (3)
  - SEPSIS [None]
  - TREATMENT FAILURE [None]
  - NEPHROLITHIASIS [None]
